FAERS Safety Report 25636790 (Version 1)
Quarter: 2025Q3

REPORT INFORMATION
  Report Type: Spontaneous
  Country: LK (occurrence: LK)
  Receive Date: 20250804
  Receipt Date: 20250804
  Transmission Date: 20251020
  Serious: Yes (Hospitalization, Other)
  Sender: PIRAMAL
  Company Number: LK-PIRAMAL CRITICAL CARE LIMITED-2025-PPL-000447

PATIENT

DRUGS (10)
  1. ISOFLURANE [Suspect]
     Active Substance: ISOFLURANE
     Indication: Maintenance of anaesthesia
  2. ISOFLURANE [Suspect]
     Active Substance: ISOFLURANE
  3. MORPHINE [Suspect]
     Active Substance: MORPHINE
     Indication: Product used for unknown indication
     Route: 042
  4. MORPHINE [Suspect]
     Active Substance: MORPHINE
     Route: 042
  5. FENTANYL [Suspect]
     Active Substance: FENTANYL
     Indication: General anaesthesia
     Route: 042
  6. ATRACURIUM [Suspect]
     Active Substance: ATRACURIUM
     Indication: General anaesthesia
     Route: 042
  7. OXYGEN [Suspect]
     Active Substance: OXYGEN
     Indication: Maintenance of anaesthesia
  8. PROPOFOL [Suspect]
     Active Substance: PROPOFOL
     Indication: General anaesthesia
     Route: 042
  9. NITROUS OXIDE [Suspect]
     Active Substance: NITROUS OXIDE
     Indication: Maintenance of anaesthesia
  10. OXYGEN [Suspect]
     Active Substance: OXYGEN
     Indication: Maintenance of anaesthesia

REACTIONS (2)
  - Cardiogenic shock [Recovered/Resolved]
  - Stress cardiomyopathy [Recovered/Resolved]
